APPROVED DRUG PRODUCT: IBTROZI
Active Ingredient: TALETRECTINIB ADIPATE
Strength: EQ 200MG BASE
Dosage Form/Route: CAPSULE;ORAL
Application: N219713 | Product #001
Applicant: NUVATION BIO INC
Approved: Jun 11, 2025 | RLD: Yes | RS: Yes | Type: RX

PATENTS:
Patent 9751887 | Expires: Jun 3, 2033
Patent 9187489 | Expires: Jun 3, 2033

EXCLUSIVITY:
Code: NCE | Date: Jun 11, 2030